FAERS Safety Report 10186395 (Version 1)
Quarter: 2014Q2

REPORT INFORMATION
  Report Type: Spontaneous
  Country: US (occurrence: US)
  Receive Date: 20140521
  Receipt Date: 20140521
  Transmission Date: 20141212
  Serious: No
  Sender: FDA-Public Use
  Company Number: US-ASTRAZENECA-2014SE04595

PATIENT
  Age: 65 Year
  Sex: Male
  Weight: 137 kg

DRUGS (6)
  1. PULMICORT FLEXHALER [Suspect]
     Indication: CHRONIC OBSTRUCTIVE PULMONARY DISEASE
     Dosage: 180 MG, 1 PUFF, DAILY
     Route: 055
  2. LISINOPRIL [Suspect]
     Indication: BLOOD PRESSURE ABNORMAL
     Route: 048
  3. SPIRIVA [Concomitant]
     Indication: CHRONIC OBSTRUCTIVE PULMONARY DISEASE
     Dosage: 180MCG DAILY
  4. METFORMIN [Concomitant]
     Indication: DIABETES MELLITUS
  5. JANUVIA [Concomitant]
     Indication: DIABETES MELLITUS
  6. FUROSEMIDE [Concomitant]
     Indication: DIURETIC THERAPY

REACTIONS (4)
  - Chest discomfort [Unknown]
  - Drug dose omission [Unknown]
  - Off label use [Unknown]
  - Wrong technique in drug usage process [Unknown]
